FAERS Safety Report 16183569 (Version 3)
Quarter: 2019Q3

REPORT INFORMATION
  Report Type: Spontaneous
  Country: IT (occurrence: IT)
  Receive Date: 20190411
  Receipt Date: 20190724
  Transmission Date: 20191004
  Serious: Yes (Death, Hospitalization, Other)
  Sender: FDA-Public Use
  Company Number: IT-BRISTOL-MYERS SQUIBB COMPANY-BMS-2019-032514

PATIENT
  Age: 71 Year
  Sex: Male

DRUGS (4)
  1. NIVOLUMAB [Suspect]
     Active Substance: NIVOLUMAB
     Indication: MALIGNANT MELANOMA
     Dosage: UNK
     Route: 065
     Dates: start: 20171229, end: 20181212
  2. IPILIMUMAB [Suspect]
     Active Substance: IPILIMUMAB
     Indication: MALIGNANT MELANOMA
     Dosage: UNK
     Route: 065
     Dates: start: 20190118
  3. NIVOLUMAB [Suspect]
     Active Substance: NIVOLUMAB
     Indication: NON-HODGKIN^S LYMPHOMA
     Route: 065
  4. IPILIMUMAB [Suspect]
     Active Substance: IPILIMUMAB
     Indication: NON-HODGKIN^S LYMPHOMA
     Route: 065

REACTIONS (18)
  - Death [Fatal]
  - Stevens-Johnson syndrome [Unknown]
  - Vasculitis necrotising [Unknown]
  - Escherichia sepsis [Unknown]
  - Cough [Recovering/Resolving]
  - Pericardial effusion [Unknown]
  - Anuria [Unknown]
  - Diarrhoea [Unknown]
  - Metastases to abdominal cavity [Unknown]
  - Vasculitis [Recovering/Resolving]
  - Erythema [Recovering/Resolving]
  - Oropharyngeal candidiasis [Unknown]
  - Bone marrow disorder [Unknown]
  - Hypersensitivity vasculitis [Unknown]
  - Pyrexia [Recovering/Resolving]
  - Asthenia [Recovering/Resolving]
  - Feeding disorder [Recovering/Resolving]
  - Hypotension [Unknown]

NARRATIVE: CASE EVENT DATE: 20190322
